FAERS Safety Report 6527400-8 (Version None)
Quarter: 2010Q1

REPORT INFORMATION
  Report Type: 
  Country: None (occurrence: None)
  Receive Date: 20100105
  Receipt Date: 20091230
  Transmission Date: 20100710
  Serious: Yes (Other)
  Sender: FDA-Public Use
  Company Number: AU-PFIZER INC-2009316151

PATIENT
  Sex: Male

DRUGS (1)
  1. PROSTIN VR PAEDIATRIC INJECTION [Suspect]
     Indication: ANGIOPATHY
     Dosage: 2UG/ML, 0.25-0.7ML/MIN FOR 1 HR
     Route: 042

REACTIONS (3)
  - MYALGIA [None]
  - PAIN [None]
  - SKIN DISCOLOURATION [None]
